FAERS Safety Report 11123385 (Version 2)
Quarter: 2015Q2

REPORT INFORMATION
  Report Type: Spontaneous
  Country: US (occurrence: US)
  Receive Date: 20150519
  Receipt Date: 20150519
  Transmission Date: 20150821
  Serious: No
  Sender: FDA-Public Use
  Company Number: US-AUXILIUM PHARMACEUTICALS INC.-201503080

PATIENT
  Age: 56 Year
  Sex: Male

DRUGS (4)
  1. CIALIS [Concomitant]
     Active Substance: TADALAFIL
  2. TRAMADOL [Concomitant]
     Active Substance: TRAMADOL
  3. XIAFLEX [Suspect]
     Active Substance: COLLAGENASE CLOSTRIDIUM HISTOLYTICUM
     Indication: PEYRONIE^S DISEASE
     Route: 026
     Dates: start: 20150309, end: 20150309
  4. MELOXICAM. [Concomitant]
     Active Substance: MELOXICAM

REACTIONS (1)
  - Injection site haematoma [Unknown]

NARRATIVE: CASE EVENT DATE: 201503
